FAERS Safety Report 8773064 (Version 3)
Quarter: 2012Q4

REPORT INFORMATION
  Report Type: Report from Study
  Country: US (occurrence: US)
  Receive Date: 20120907
  Receipt Date: 20120923
  Transmission Date: 20130627
  Serious: Yes (Other)
  Sender: FDA-Public Use
  Company Number: US-ABBOTT-12P-163-0974070-00

PATIENT
  Age: 58 None
  Sex: Male
  Weight: 68.1 kg

DRUGS (6)
  1. NIASPAN (COATED) 500MG [Suspect]
     Indication: BLOOD CHOLESTEROL INCREASED
     Dosage: at bedtime
     Dates: start: 200312
  2. NIASPAN (COATED) 500MG [Suspect]
     Indication: HIGH DENSITY LIPOPROTEIN DECREASED
  3. COREG [Concomitant]
     Indication: PRODUCT USED FOR UNKNOWN INDICATION
  4. PLAVIX [Concomitant]
     Indication: PRODUCT USED FOR UNKNOWN INDICATION
  5. ASA [Concomitant]
     Indication: PRODUCT USED FOR UNKNOWN INDICATION
  6. RAMIPRIL [Concomitant]
     Indication: PRODUCT USED FOR UNKNOWN INDICATION

REACTIONS (7)
  - Neoplasm malignant [Unknown]
  - Squamous cell carcinoma [Recovered/Resolved]
  - Pruritus [Recovered/Resolved]
  - Wound [Recovered/Resolved]
  - Abscess oral [Recovered/Resolved]
  - Weight decreased [Recovered/Resolved]
  - Cardiac disorder [Not Recovered/Not Resolved]
